FAERS Safety Report 8942184 (Version 1)
Quarter: 2012Q4

REPORT INFORMATION
  Report Type: 
  Country: FR (occurrence: FR)
  Receive Date: 20121202
  Receipt Date: 20121202
  Transmission Date: 20130627
  Serious: Yes (Hospitalization)
  Sender: FDA-Public Use
  Company Number: FR-SANOFI-AVENTIS-2012SA085967

PATIENT
  Age: 72 Year
  Sex: Male

DRUGS (15)
  1. LOVENOX [Suspect]
     Indication: DRUG USE FOR UNKNOWN INDICATION
     Route: 058
     Dates: end: 20120907
  2. BACTRIM [Suspect]
     Indication: DRUG USE FOR UNKNOWN INDICATION
     Route: 048
     Dates: start: 20120824, end: 20120907
  3. DOLIPRANE [Concomitant]
  4. SOLUPRED [Concomitant]
     Route: 048
  5. TAVANIC [Concomitant]
  6. GABAPENTIN [Concomitant]
     Route: 048
  7. FOLIC ACID [Concomitant]
  8. LOPERAMIDE [Concomitant]
     Route: 048
  9. SALBUTAMOL [Concomitant]
  10. PARIET [Concomitant]
     Route: 048
  11. DIFFU K [Concomitant]
     Route: 048
  12. VITABACT [Concomitant]
  13. SPIRIVA [Concomitant]
  14. NORMACOL [Concomitant]
  15. CEFTRIAXONE [Concomitant]
     Indication: URINARY INFECTION
     Dates: start: 20120821, end: 20120823

REACTIONS (2)
  - Neutropenia [Recovered/Resolved]
  - Thrombocytopenia [Recovered/Resolved]
